FAERS Safety Report 12421838 (Version 1)
Quarter: 2016Q2

REPORT INFORMATION
  Report Type: Spontaneous
  Country: ES (occurrence: ES)
  Receive Date: 20160531
  Receipt Date: 20160531
  Transmission Date: 20160815
  Serious: Yes (Other)
  Sender: FDA-Public Use
  Company Number: ES-SA-2016SA076096

PATIENT
  Age: 28 Year
  Sex: Male
  Weight: 61.3 kg

DRUGS (2)
  1. LEMTRADA [Suspect]
     Active Substance: ALEMTUZUMAB
     Route: 042
     Dates: start: 20150413, end: 20150417
  2. LEMTRADA [Suspect]
     Active Substance: ALEMTUZUMAB
     Route: 042
     Dates: start: 20160413, end: 20160415

REACTIONS (7)
  - Thyroid disorder [Unknown]
  - Pyrexia [Recovered/Resolved]
  - Hypothyroidism [Unknown]
  - C-reactive protein increased [Not Recovered/Not Resolved]
  - Procalcitonin increased [Not Recovered/Not Resolved]
  - Lymphocyte count abnormal [Unknown]
  - Blood thyroid stimulating hormone increased [Unknown]

NARRATIVE: CASE EVENT DATE: 20160322
